FAERS Safety Report 8560639-9 (Version None)
Quarter: 2012Q3

REPORT INFORMATION
  Report Type: 
  Country: None (occurrence: None)
  Receive Date: 20120802
  Receipt Date: 20120726
  Transmission Date: 20120928
  Serious: Yes (Hospitalization, Other)
  Sender: FDA-Public Use
  Company Number: JP-PFIZER INC-2012146613

PATIENT
  Age: 68 Year
  Sex: Female
  Weight: 52.1 kg

DRUGS (1)
  1. AZULFIDINE [Suspect]
     Indication: RHEUMATOID ARTHRITIS
     Dosage: 500 MG, 2X/DAY
     Route: 048
     Dates: start: 20120531, end: 20120613

REACTIONS (4)
  - GRANULOCYTOPENIA [None]
  - ERYTHEMA [None]
  - LIVER DISORDER [None]
  - TOXIC SKIN ERUPTION [None]
